FAERS Safety Report 25899421 (Version 1)
Quarter: 2025Q4

REPORT INFORMATION
  Report Type: Spontaneous
  Country: EU (occurrence: None)
  Receive Date: 20251009
  Receipt Date: 20251009
  Transmission Date: 20260117
  Serious: Yes (Life-Threatening, Hospitalization)
  Sender: ADDMEDICA
  Company Number: None

PATIENT
  Age: 66 Year
  Sex: Female

DRUGS (13)
  1. HYDROXYUREA [Suspect]
     Active Substance: HYDROXYUREA
     Indication: Acute myelomonocytic leukaemia
     Dates: start: 201612
  2. VORICONAZOLE [Suspect]
     Active Substance: VORICONAZOLE
     Indication: Antifungal treatment
     Dosage: UNK
  3. MEROPENEM [Suspect]
     Active Substance: MEROPENEM
     Indication: Pneumonia
     Dosage: UNK
  4. PIPERACILLIN AND TAZOBACTAM [Suspect]
     Active Substance: PIPERACILLIN SODIUM\TAZOBACTAM SODIUM
     Indication: Pneumonia
     Dosage: UNK
  5. LEVOFLOXACIN [Suspect]
     Active Substance: LEVOFLOXACIN
     Indication: Pneumonia
     Dosage: UNK
  6. TIGECYCLINE [Suspect]
     Active Substance: TIGECYCLINE
     Indication: Pneumonia
  7. CEFEPIME [Suspect]
     Active Substance: CEFEPIME HYDROCHLORIDE
     Indication: Antibiotic therapy
  8. TEICOPLANIN [Suspect]
     Active Substance: TEICOPLANIN
     Indication: Antibiotic therapy
  9. COLISTIN [Suspect]
     Active Substance: COLISTIN
     Indication: Pneumonia
  10. GENTAMICIN [Suspect]
     Active Substance: GENTAMICIN
     Indication: Pneumonia
  11. AZACITIDINE [Suspect]
     Active Substance: AZACITIDINE
     Indication: Product used for unknown indication
     Dosage: 2ND CYCLE
     Dates: start: 201704
  12. AMOXICILLIN\CLAVULANIC ACID [Suspect]
     Active Substance: AMOXICILLIN\CLAVULANIC ACID
     Indication: Tooth abscess
     Dates: start: 201612
  13. FLAGYL [Suspect]
     Active Substance: METRONIDAZOLE\METRONIDAZOLE HYDROCHLORIDE
     Indication: Tooth abscess
     Dates: start: 201612

REACTIONS (5)
  - Lower respiratory tract infection [Recovered/Resolved]
  - Klebsiella bacteraemia [Recovered/Resolved]
  - Urinary tract infection [Recovered/Resolved]
  - Febrile neutropenia [Recovered/Resolved]
  - Tonsillitis bacterial [Recovered/Resolved]
